FAERS Safety Report 5600504-X (Version None)
Quarter: 2008Q1

REPORT INFORMATION
  Report Type: 
  Country: None (occurrence: None)
  Receive Date: 20080118
  Receipt Date: 20080114
  Transmission Date: 20080703
  Serious: Yes (Death, Hospitalization)
  Sender: FDA-Public Use
  Company Number: 200705IM000200

PATIENT
  Age: 58 Year
  Sex: Male
  Weight: 120.2032 kg

DRUGS (8)
  1. ACTIMMUNE [Suspect]
     Indication: HEPATITIS C
     Dosage: 50 UG, TIW, SUBCUTANEOUS
     Route: 058
     Dates: start: 20060816, end: 20070418
  2. INFERGEN [Suspect]
     Dosage: 15 UG, QD, SUBCUTANEOUS
     Route: 058
     Dates: start: 20060801, end: 20070418
  3. RIBAVIRIN [Suspect]
     Dosage: 600 MG, BID, ORAL
     Route: 048
     Dates: start: 20060801, end: 20070418
  4. ACIPHEX [Concomitant]
  5. ALTACE [Concomitant]
  6. BENADRYL [Concomitant]
  7. WELLBUTRIN [Concomitant]
  8. ZANTAC [Concomitant]

REACTIONS (10)
  - ASTHENIA [None]
  - DISTURBANCE IN ATTENTION [None]
  - FATIGUE [None]
  - LOWER LIMB FRACTURE [None]
  - MEMORY IMPAIRMENT [None]
  - PELVIC FRACTURE [None]
  - RENAL FAILURE [None]
  - ROAD TRAFFIC ACCIDENT [None]
  - UNEVALUABLE EVENT [None]
  - WEIGHT DECREASED [None]
